FAERS Safety Report 11642086 (Version 1)
Quarter: 2015Q4

REPORT INFORMATION
  Report Type: Spontaneous
  Country: JP (occurrence: JP)
  Receive Date: 20151019
  Receipt Date: 20151019
  Transmission Date: 20160304
  Serious: Yes (Other)
  Sender: FDA-Public Use
  Company Number: JP-APOTEX-2015AP013574

PATIENT

DRUGS (1)
  1. PAXIL [Suspect]
     Active Substance: PAROXETINE HYDROCHLORIDE
     Indication: ANXIETY DISORDER
     Dosage: UNK
     Route: 048
     Dates: start: 201502

REACTIONS (4)
  - Self injurious behaviour [Recovered/Resolved]
  - Vomiting [Recovered/Resolved]
  - Delusion [Recovered/Resolved]
  - Somnolence [Recovered/Resolved]
